FAERS Safety Report 7536802-2 (Version None)
Quarter: 2011Q2

REPORT INFORMATION
  Report Type: 
  Country: None (occurrence: None)
  Receive Date: 20110609
  Receipt Date: 20110525
  Transmission Date: 20111010
  Serious: No
  Sender: FDA-Public Use
  Company Number: US-JNJFOC-20110511506

PATIENT
  Age: 4 Decade
  Sex: Female

DRUGS (2)
  1. INVEGA SUSTENNA [Suspect]
     Route: 030
     Dates: start: 20110101, end: 20110501
  2. INVEGA SUSTENNA [Suspect]
     Indication: SCHIZOPHRENIA
     Route: 030
     Dates: start: 20100101, end: 20110101

REACTIONS (1)
  - DIZZINESS [None]
